FAERS Safety Report 13471629 (Version 1)
Quarter: 2017Q2

REPORT INFORMATION
  Report Type: Spontaneous
  Country: US (occurrence: US)
  Receive Date: 20170421
  Receipt Date: 20170421
  Transmission Date: 20170830
  Serious: Yes (Hospitalization)
  Sender: FDA-Public Use
  Company Number: None

PATIENT
  Age: 64 Year
  Sex: Male
  Weight: 131.54 kg

DRUGS (1)
  1. LAMOTRIGINE. [Suspect]
     Active Substance: LAMOTRIGINE
     Indication: PAIN
     Route: 048
     Dates: start: 20160816, end: 20161214

REACTIONS (3)
  - Syncope [None]
  - Dehydration [None]
  - Dyspnoea [None]

NARRATIVE: CASE EVENT DATE: 20161204
